FAERS Safety Report 6546001-9 (Version None)
Quarter: 2010Q1

REPORT INFORMATION
  Report Type: 
  Country: None (occurrence: None)
  Receive Date: 20100121
  Receipt Date: 20100121
  Transmission Date: 20100710
  Serious: Yes (Life-Threatening, Hospitalization)
  Sender: FDA-Public Use
  Company Number: None

PATIENT
  Age: 82 Year
  Sex: Female

DRUGS (1)
  1. DILTIAZEM HCL [Suspect]
     Indication: HYPERTENSION
     Dosage: 1 CAPSULE ORALLY DAILY (UNKNOWN IF PATIENT TOOK MORE THAN ONE CAPSULE)
     Route: 048
     Dates: start: 20091223, end: 20091224

REACTIONS (4)
  - ANGIOEDEMA [None]
  - AURICULAR SWELLING [None]
  - PARAESTHESIA [None]
  - PRODUCT SUBSTITUTION ISSUE [None]
